FAERS Safety Report 9196575 (Version 1)
Quarter: 2013Q1

REPORT INFORMATION
  Report Type: Spontaneous
  Country: US (occurrence: None)
  Receive Date: 20120709
  Receipt Date: 20120709
  Transmission Date: 20140127
  Serious: Yes (Other)
  Sender: FDA-Public Use
  Company Number: 2012HGS-003632

PATIENT
  Age: 54 Year
  Sex: Male

DRUGS (2)
  1. BENLYSTA [Suspect]
     Indication: SYSTEMIC LUPUS ERYTHEMATOSUS
     Route: 041
     Dates: start: 20120120
  2. LYRICA (PREGABALIN) (PREGABALIN) [Concomitant]

REACTIONS (1)
  - Suicidal ideation [None]
